FAERS Safety Report 7573056-5 (Version None)
Quarter: 2011Q2

REPORT INFORMATION
  Report Type: 
  Country: None (occurrence: None)
  Receive Date: 20110525
  Receipt Date: 20110322
  Transmission Date: 20111010
  Serious: Yes (Other)
  Sender: FDA-Public Use
  Company Number: 325375

PATIENT
  Age: 44 Year
  Sex: Female
  Weight: 104.3 kg

DRUGS (2)
  1. VICTOZA [Suspect]
     Indication: TYPE 2 DIABETES MELLITUS
     Dosage: 1.8 MG, QD, SUBCUTANEOUS
     Route: 058
     Dates: start: 20110112, end: 20110321
  2. GLIMEPIRIDE W/PIOGLITAZONE (GLIIMEPIRIDE, PIOGLITAZONE) [Concomitant]

REACTIONS (1)
  - PANCREATITIS [None]
